FAERS Safety Report 9713844 (Version 3)
Quarter: 2014Q1

REPORT INFORMATION
  Report Type: Spontaneous
  Country: US (occurrence: US)
  Receive Date: 20131126
  Receipt Date: 20140127
  Transmission Date: 20141002
  Serious: Yes (Hospitalization)
  Sender: FDA-Public Use
  Company Number: US-GLAXOSMITHKLINE-A1050806A

PATIENT
  Age: 82 Year
  Sex: Female

DRUGS (6)
  1. ADVAIR [Suspect]
     Indication: CHRONIC OBSTRUCTIVE PULMONARY DISEASE
     Dosage: 1PUFF TWICE PER DAY
     Route: 055
  2. COMBIVENT RESPIMAT [Concomitant]
  3. LASIX [Concomitant]
  4. MAVIK [Concomitant]
  5. LORAZEPAM [Concomitant]
  6. POTASSIUM CHLORIDE [Concomitant]

REACTIONS (2)
  - Investigation [Recovered/Resolved]
  - Product quality issue [Unknown]
